FAERS Safety Report 4802598-8 (Version None)
Quarter: 2005Q4

REPORT INFORMATION
  Report Type: 
  Country: None (occurrence: None)
  Receive Date: 20051011
  Receipt Date: 20050927
  Transmission Date: 20060501
  Serious: Yes (Other)
  Sender: FDA-Public Use
  Company Number: 2005124305

PATIENT
  Age: 78 Year
  Sex: Female
  Weight: 94.3482 kg

DRUGS (5)
  1. TUCKS HEMORRHOIDAL OINTMENT (ZINC OXIDE, MINERAL OIL, PRAMOXINE) [Suspect]
     Indication: HAEMORRHOIDS
     Dosage: COVER TIP OF ENEMA BAG, RECTAL
     Route: 054
     Dates: start: 19850101, end: 20050903
  2. HYDROCORTISONE SODIUM SUCCINATE [Suspect]
     Indication: ARTHRALGIA
     Dosage: UNSPECIFIED ^SHOT^
     Dates: start: 20050801, end: 20050901
  3. TRAMADOL HCL [Concomitant]
  4. MAGNESIUM HYDROXIDE TAB [Concomitant]
  5. METAXALONE [Concomitant]

REACTIONS (9)
  - ANAL DISCOMFORT [None]
  - ANORECTAL DISORDER [None]
  - APPLICATION SITE IRRITATION [None]
  - BURNING SENSATION [None]
  - CONDITION AGGRAVATED [None]
  - PAIN [None]
  - RASH [None]
  - SWELLING [None]
  - WEIGHT DECREASED [None]
